FAERS Safety Report 17073472 (Version 1)
Quarter: 2019Q4

REPORT INFORMATION
  Report Type: Spontaneous
  Country: JP (occurrence: JP)
  Receive Date: 20191126
  Receipt Date: 20191126
  Transmission Date: 20200122
  Serious: Yes (Other)
  Sender: FDA-Public Use
  Company Number: JP-SUN PHARMACEUTICAL INDUSTRIES LTD-2019RR-228882

PATIENT
  Age: 67 Year
  Sex: Male

DRUGS (2)
  1. VITAMIN D3 [Suspect]
     Active Substance: CHOLECALCIFEROL
     Indication: PSORIASIS
     Route: 065
  2. METHOTREXATE. [Suspect]
     Active Substance: METHOTREXATE
     Indication: PSORIASIS
     Route: 048

REACTIONS (2)
  - Drug ineffective [Unknown]
  - Therapy partial responder [Unknown]
